FAERS Safety Report 7521854-6 (Version None)
Quarter: 2011Q2

REPORT INFORMATION
  Report Type: 
  Country: None (occurrence: None)
  Receive Date: 20110603
  Receipt Date: 20110527
  Transmission Date: 20111010
  Serious: Yes (Other)
  Sender: FDA-Public Use
  Company Number: GB-ASTELLAS-2011EU003167

PATIENT
  Age: 72 Year
  Sex: Female
  Weight: 101 kg

DRUGS (7)
  1. SOLIFENACIN SUCCINATE [Suspect]
     Indication: MICTURITION URGENCY
     Dosage: 5 MG, UNKNOWN/D
     Route: 048
     Dates: start: 20110412, end: 20110422
  2. RAMIPRIL [Concomitant]
     Indication: HYPERTENSION
  3. RAMIPRIL [Concomitant]
     Indication: RENAL FAILURE CHRONIC
     Dosage: 5 MG, UNKNOWN/D
     Route: 048
     Dates: start: 20041101
  4. COLECALCIFEROL [Concomitant]
     Dosage: UNK
     Route: 048
     Dates: start: 20090701
  5. ASPIRIN [Concomitant]
     Indication: ESSENTIAL HYPERTENSION
     Dosage: 75 MG, UNKNOWN/D
     Route: 048
     Dates: start: 20070601
  6. SENNA-MINT WAF [Concomitant]
     Indication: CONSTIPATION
     Dosage: 7.5 MG, UNKNOWN/D
     Route: 048
     Dates: start: 19971201
  7. ATENOLOL [Concomitant]
     Indication: HYPERTENSION
     Dosage: 50 MG, UNKNOWN/D
     Route: 048
     Dates: start: 20040501

REACTIONS (1)
  - ANAPHYLACTIC REACTION [None]
